FAERS Safety Report 7420950-1 (Version None)
Quarter: 2011Q2

REPORT INFORMATION
  Report Type: 
  Country: None (occurrence: None)
  Receive Date: 20110418
  Receipt Date: 20110411
  Transmission Date: 20111010
  Serious: Yes (Other)
  Sender: FDA-Public Use
  Company Number: B0713551A

PATIENT
  Age: 43 Year
  Sex: Female

DRUGS (1)
  1. ONDANSETRON [Suspect]
     Dosage: 4MG SINGLE DOSE
     Route: 042

REACTIONS (5)
  - DIZZINESS [None]
  - SYNCOPE [None]
  - SINUS BRADYCARDIA [None]
  - LOSS OF CONSCIOUSNESS [None]
  - RESPIRATORY ARREST [None]
